FAERS Safety Report 5762498-6 (Version None)
Quarter: 2008Q2

REPORT INFORMATION
  Report Type: 
  Country: None (occurrence: None)
  Receive Date: 20080609
  Receipt Date: 20080528
  Transmission Date: 20081010
  Serious: Yes (Hospitalization)
  Sender: FDA-Public Use
  Company Number: A0727731A

PATIENT
  Age: 57 Year
  Sex: Female

DRUGS (22)
  1. LAMICTAL [Suspect]
     Dosage: 350MG SINGLE DOSE
     Route: 048
     Dates: start: 20080421, end: 20080421
  2. ZANTAC [Suspect]
     Dosage: 150MG SINGLE DOSE
     Route: 048
     Dates: start: 20080421, end: 20080421
  3. CARBATROL [Suspect]
     Dosage: 700MG SINGLE DOSE
     Route: 048
     Dates: start: 20080421, end: 20080421
  4. KLONOPIN [Suspect]
     Dosage: 4.5MG SINGLE DOSE
     Route: 048
     Dates: start: 20080421, end: 20080421
  5. TEGRETOL [Suspect]
     Dosage: 350MG SINGLE DOSE
     Route: 048
     Dates: start: 20080421, end: 20080421
  6. ZOLOFT [Suspect]
     Dosage: 100MG SINGLE DOSE
     Route: 048
     Dates: start: 20080421, end: 20080421
  7. COLACE [Suspect]
     Dosage: 100MG SINGLE DOSE
     Route: 048
     Dates: start: 20080421, end: 20080421
  8. MELATONIN [Suspect]
     Dosage: 175MG SINGLE DOSE
     Route: 048
     Dates: start: 20080421, end: 20080421
  9. INVESTIGATIONAL DRUG [Suspect]
     Indication: DRUG USE FOR UNKNOWN INDICATION
  10. AMITRIPTYLINE HCL [Concomitant]
     Dosage: 25MG PER DAY
  11. IMITREX [Concomitant]
     Dosage: 50MG PER DAY
  12. TETRACYCLINE [Concomitant]
     Dosage: 500MG PER DAY
  13. PROPRANOLOL [Concomitant]
     Dosage: 40MG PER DAY
  14. TYLENOL W/ CODEINE NO. 3 [Concomitant]
     Dosage: 1TAB PER DAY
  15. GLUCOSAMINE [Concomitant]
  16. CHONDROITIN [Concomitant]
  17. MULTI-VITAMIN [Concomitant]
     Dosage: 1TAB PER DAY
  18. VITAMIN E [Concomitant]
     Dosage: 400IU PER DAY
  19. PEPCID [Concomitant]
     Dosage: 20MG PER DAY
  20. ADVIL [Concomitant]
     Dosage: 600MG PER DAY
  21. FLUOXETINE HCL [Concomitant]
     Dosage: 20MG PER DAY
  22. MELATONIN [Concomitant]
     Dosage: 3MG PER DAY

REACTIONS (5)
  - ACCIDENTAL EXPOSURE [None]
  - CONFUSIONAL STATE [None]
  - DEPRESSED LEVEL OF CONSCIOUSNESS [None]
  - INCONTINENCE [None]
  - LETHARGY [None]
